FAERS Safety Report 5146649-2 (Version None)
Quarter: 2006Q4

REPORT INFORMATION
  Report Type: 
  Country: None (occurrence: None)
  Receive Date: 20061109
  Receipt Date: 20061101
  Transmission Date: 20070319
  Serious: Yes (Death, Other)
  Sender: FDA-Public Use
  Company Number: US-AVENTIS-200619014US

PATIENT
  Age: 72 Year
  Sex: Female

DRUGS (3)
  1. LOVENOX [Suspect]
     Indication: PULMONARY EMBOLISM
     Dosage: DOSE: 1MG/KG
     Dates: start: 20061001, end: 20061001
  2. COUMADIN [Concomitant]
     Dosage: DOSE: UNK
  3. ANTIHYPERTENSIVES [Concomitant]
     Dosage: DOSE: UNK

REACTIONS (6)
  - ARRHYTHMIA [None]
  - CARDIAC ARREST [None]
  - HEPARIN-INDUCED THROMBOCYTOPENIA [None]
  - METABOLIC ACIDOSIS [None]
  - PLATELET COUNT DECREASED [None]
  - PULMONARY EMBOLISM [None]
